FAERS Safety Report 21902067 (Version 2)
Quarter: 2023Q1

REPORT INFORMATION
  Report Type: Spontaneous
  Country: US (occurrence: US)
  Receive Date: 20230124
  Receipt Date: 20230222
  Transmission Date: 20230418
  Serious: No
  Sender: FDA-Public Use
  Company Number: US-SA-SAC20230123000580

PATIENT
  Age: 12 Year
  Sex: Male

DRUGS (2)
  1. DUPIXENT [Suspect]
     Active Substance: DUPILUMAB
     Indication: Asthma
     Dosage: 400 MG 1X
     Route: 058
     Dates: start: 20221230, end: 20221230
  2. DUPIXENT [Suspect]
     Active Substance: DUPILUMAB
     Dosage: 200MG QOW
     Route: 058
     Dates: start: 202301

REACTIONS (6)
  - Impaired quality of life [Unknown]
  - Nasopharyngitis [Unknown]
  - Chills [Unknown]
  - Rhinorrhoea [Unknown]
  - Pain [Unknown]
  - Oropharyngeal pain [Unknown]
